FAERS Safety Report 23321670 (Version 2)
Quarter: 2023Q4

REPORT INFORMATION
  Report Type: Spontaneous
  Country: CN (occurrence: CN)
  Receive Date: 20231220
  Receipt Date: 20231228
  Transmission Date: 20240110
  Serious: Yes (Other)
  Sender: FDA-Public Use
  Company Number: CN-BAYER-2023A182239

PATIENT
  Age: 57 Year
  Sex: Male
  Weight: 70 kg

DRUGS (3)
  1. GLUCOBAY [Suspect]
     Active Substance: ACARBOSE
     Indication: Type 2 diabetes mellitus
     Dosage: 50 MG, TID
     Route: 048
     Dates: start: 20231020, end: 20231129
  2. LEVOFLOXACIN [Suspect]
     Active Substance: LEVOFLOXACIN
     Indication: Pneumonia
     Dosage: 100 ML, QD
     Route: 041
     Dates: start: 20231129, end: 20231211
  3. OSELTAMIVIR PHOSPHATE [Suspect]
     Active Substance: OSELTAMIVIR PHOSPHATE
     Indication: Pneumonia
     Dosage: 75 MG, BID
     Route: 048
     Dates: start: 20231129, end: 20231204

REACTIONS (4)
  - Hepatic enzyme increased [Recovered/Resolved]
  - Pneumonia [None]
  - Pyrexia [None]
  - Gait disturbance [None]

NARRATIVE: CASE EVENT DATE: 20231129
